FAERS Safety Report 5045796-3 (Version None)
Quarter: 2006Q2

REPORT INFORMATION
  Report Type: 
  Country: None (occurrence: None)
  Receive Date: 20060601
  Receipt Date: 20060131
  Transmission Date: 20061013
  Serious: No
  Sender: FDA-Public Use
  Company Number: 2006-BP-18965BP

PATIENT
  Sex: Male

DRUGS (9)
  1. SPIRIVA [Suspect]
     Indication: CHRONIC OBSTRUCTIVE PULMONARY DISEASE
     Dosage: 18 MCG (18 MCG, 1 IN 1 D), IH
     Route: 055
     Dates: start: 20050601
  2. SPIRIVA [Suspect]
     Indication: DYSPNOEA
     Dosage: 18 MCG (18 MCG, 1 IN 1 D), IH
     Route: 055
     Dates: start: 20050601
  3. AEROBID [Concomitant]
  4. ATENOLOL [Concomitant]
  5. PRILOSEC [Concomitant]
  6. GUAIFENISON [Concomitant]
  7. SPIRONOLACTONE [Concomitant]
  8. AMEPRAZOLE [Concomitant]
  9. FLONASE [Concomitant]

REACTIONS (2)
  - DRUG INEFFECTIVE [None]
  - DYSPNOEA [None]
